FAERS Safety Report 20529568 (Version 2)
Quarter: 2022Q4

REPORT INFORMATION
  Report Type: Spontaneous
  Country: AT (occurrence: AT)
  Receive Date: 20220301
  Receipt Date: 20221023
  Transmission Date: 20230112
  Serious: Yes (Hospitalization, Other)
  Sender: FDA-Public Use
  Company Number: AT-BRISTOL-MYERS SQUIBB COMPANY-BMS-2021-021883

PATIENT
  Age: 77 Year
  Sex: Female

DRUGS (5)
  1. DASATINIB [Suspect]
     Active Substance: DASATINIB
     Indication: Chronic myeloid leukaemia
     Dosage: 50 MG, QD, (1-0-0)
     Route: 065
  2. ASCIMINIB [Suspect]
     Active Substance: ASCIMINIB
     Indication: Product used for unknown indication
     Dosage: 50 MG, BID, (1-0-1)
     Route: 065
  3. BOSUTINIB [Suspect]
     Active Substance: BOSUTINIB
     Indication: Product used for unknown indication
     Dosage: 400 MG, QD, (1-0-0)
     Route: 065
  4. IMATINIB [Suspect]
     Active Substance: IMATINIB
     Indication: Chronic myeloid leukaemia
     Dosage: UNK
     Route: 065
     Dates: start: 20200616, end: 20200715
  5. IMATINIB [Suspect]
     Active Substance: IMATINIB
     Dosage: 400 MG, QD, (1-0-0)
     Route: 065
     Dates: start: 20200706, end: 202007

REACTIONS (11)
  - Hypotension [Unknown]
  - Leukocytosis [Unknown]
  - Acute kidney injury [Recovered/Resolved]
  - Vomiting [Unknown]
  - Cytogenetic analysis abnormal [Unknown]
  - Cardiovascular disorder [Unknown]
  - Muscle spasms [Unknown]
  - Diarrhoea [Unknown]
  - Pulmonary hypertension [Recovered/Resolved]
  - Renal impairment [Recovering/Resolving]
  - Bronchiolitis [Recovering/Resolving]
